FAERS Safety Report 6269859-X (Version None)
Quarter: 2009Q3

REPORT INFORMATION
  Report Type: 
  Country: None (occurrence: None)
  Receive Date: 20090716
  Receipt Date: 20070821
  Transmission Date: 20100115
  Serious: Yes (Other)
  Sender: FDA-Public Use
  Company Number: US-ASTRAZENECA-2007UW15759

PATIENT
  Age: 584 Month
  Sex: Female
  Weight: 117.6 kg

DRUGS (19)
  1. SEROQUEL [Suspect]
     Indication: SLEEP DISORDER
     Route: 048
     Dates: start: 20041201, end: 20051208
  2. HYDROCHLOROTHIAZIDE [Concomitant]
     Route: 048
  3. VANCOMYCIN [Concomitant]
     Dosage: 500 MG OD-150 MG BID
     Route: 042
  4. MYLANTA [Concomitant]
     Dosage: 300 ML QID PRN
     Route: 048
  5. FLAGYL [Concomitant]
     Route: 048
  6. ATIVAN [Concomitant]
     Dosage: 2 MG QID 24 HRS, 1 MG QID SECOND 24 HRS, 0.5 MG QID THIRD 24 HRS - TAPERING DOSE
     Route: 048
  7. TYLENOL [Concomitant]
     Indication: PAIN
     Dosage: 650 MG Q 4 HRS PRN
     Route: 048
  8. TYLENOL [Concomitant]
     Indication: PYREXIA
     Dosage: 650 MG Q 4 HRS PRN
     Route: 048
  9. AUGMENTIN [Concomitant]
     Dosage: 1 TABLET DAILY
     Route: 048
  10. METHADONE HCL [Concomitant]
     Dosage: 50 MG TO 70 MG DAILY
     Route: 048
  11. ZOFRAN [Concomitant]
     Dosage: 4 MG TO 8 MG EVERY 6 HOURS PRN
     Route: 048
  12. LASIX [Concomitant]
     Route: 048
  13. REGLAN [Concomitant]
     Dosage: 5 MG P.O. Q.I.D 10 MG P.O OR IV Q.6.H. P.R.N, 10 MG PER NG TUBE Q.I.D
     Route: 065
  14. DILAUDID [Concomitant]
     Dosage: 2 MG/1 ML Q4H
     Route: 042
  15. DIBUCAINE [Concomitant]
     Dosage: THIN LAYER PRN ROUTE TOP
     Route: 065
  16. CEPHULAC [Concomitant]
     Dosage: 40G/60 ML BID
     Route: 048
  17. LEVOPHED [Concomitant]
     Dosage: 4 MG/4ML
     Route: 042
  18. NYSTOP [Concomitant]
     Route: 065
  19. HALDOL [Concomitant]
     Indication: AGITATION
     Dosage: 2 MG/0.4 ML-4 MG/0.8 ML EVERY 8 HOURS, PRN
     Route: 030
     Dates: start: 20050809

REACTIONS (4)
  - HEPATIC FAILURE [None]
  - OBESITY [None]
  - PANCREATITIS [None]
  - RENAL FAILURE [None]
